FAERS Safety Report 18468410 (Version 3)
Quarter: 2021Q4

REPORT INFORMATION
  Report Type: Spontaneous
  Country: FR (occurrence: FR)
  Receive Date: 20201105
  Receipt Date: 20211228
  Transmission Date: 20220303
  Serious: Yes (Death, Other)
  Sender: FDA-Public Use
  Company Number: FR-PFIZER INC-2020428903

PATIENT
  Age: 85 Year
  Sex: Female

DRUGS (1)
  1. VYNDAQEL [Suspect]
     Active Substance: TAFAMIDIS MEGLUMINE
     Dosage: 20 MG, DAILY
     Dates: start: 20190206

REACTIONS (1)
  - Death [Fatal]

NARRATIVE: CASE EVENT DATE: 20190701
